FAERS Safety Report 8446263 (Version 18)
Quarter: 2014Q2

REPORT INFORMATION
  Report Type: Spontaneous
  Country: GB (occurrence: GB)
  Receive Date: 20120307
  Receipt Date: 20140414
  Transmission Date: 20141212
  Serious: Yes (Hospitalization, Other)
  Sender: FDA-Public Use
  Company Number: PHFR2011GB04591

PATIENT
  Age: 49 Year
  Sex: Female

DRUGS (9)
  1. CLOZARIL [Suspect]
     Indication: SCHIZOAFFECTIVE DISORDER
     Dosage: 550 MG, QD
     Route: 048
     Dates: start: 20070914
  2. CLOZARIL [Suspect]
     Dosage: 400 MG, QD
     Route: 048
     Dates: start: 2009
  3. CLOZARIL [Suspect]
     Dosage: 400 MG, QD
     Route: 048
     Dates: start: 2010
  4. CLOZAPINE [Concomitant]
     Indication: PSYCHOTIC DISORDER
     Dosage: 400 MG, QD
     Route: 048
  5. FLUOXETINE [Concomitant]
     Indication: DEPRESSION
     Dosage: 60 MG, DAILY
     Route: 048
     Dates: start: 20110607
  6. VANCOMYCIN [Concomitant]
     Indication: EAR INFECTION
     Dosage: UNK
     Route: 048
     Dates: start: 20120410, end: 20120417
  7. ARIPIPRAZOLE [Concomitant]
     Indication: PSYCHOTIC DISORDER
     Dosage: 5 MG, DAILY
     Route: 048
     Dates: start: 20120607
  8. SODIUM VALPROATE [Concomitant]
     Indication: AFFECTIVE DISORDER
     Dosage: 400 MG, QD
     Route: 048
  9. CLINDAMYCIN [Concomitant]
     Indication: EAR INFECTION
     Dosage: UNK
     Route: 048
     Dates: start: 20120417

REACTIONS (14)
  - Ear infection [Recovered/Resolved]
  - Otitis externa [Recovered/Resolved]
  - Skin infection [Recovered/Resolved]
  - Cellulitis [Unknown]
  - External ear cellulitis [Recovered/Resolved]
  - White blood cell count increased [Not Recovered/Not Resolved]
  - Neutrophil count increased [Not Recovered/Not Resolved]
  - Hyperhidrosis [Unknown]
  - Lower respiratory tract infection [Recovered/Resolved]
  - Psoriasis [Recovered/Resolved]
  - Urinary incontinence [Not Recovered/Not Resolved]
  - Bronchitis [Recovered/Resolved]
  - Angina pectoris [Not Recovered/Not Resolved]
  - Platelet count increased [Unknown]
